FAERS Safety Report 17780648 (Version 1)
Quarter: 2020Q2

REPORT INFORMATION
  Report Type: Spontaneous
  Country: US (occurrence: US)
  Receive Date: 20200513
  Receipt Date: 20200513
  Transmission Date: 20200714
  Serious: Yes (Life-Threatening, Hospitalization, Other)
  Sender: FDA-Public Use
  Company Number: None

PATIENT
  Age: 52 Year
  Sex: Female
  Weight: 58.06 kg

DRUGS (3)
  1. BACLOFEN (BACLOFEN 10MG TAB) [Suspect]
     Active Substance: BACLOFEN
     Indication: PAIN
     Route: 048
     Dates: start: 20191024, end: 20191029
  2. BACLOFEN (BACLOFEN 10MG TAB) [Suspect]
     Active Substance: BACLOFEN
     Indication: MUSCLE SPASMS
  3. BACLOFEN (BACLOFEN 10MG TAB) [Suspect]
     Active Substance: BACLOFEN
     Indication: PAIN

REACTIONS (4)
  - Respiratory depression [None]
  - Dizziness [None]
  - Headache [None]
  - Dyspnoea [None]

NARRATIVE: CASE EVENT DATE: 20191029
